FAERS Safety Report 17263948 (Version 1)
Quarter: 2020Q1

REPORT INFORMATION
  Report Type: Spontaneous
  Country: US (occurrence: US)
  Receive Date: 20200113
  Receipt Date: 20200113
  Transmission Date: 20200409
  Serious: Yes (Other)
  Sender: FDA-Public Use
  Company Number: US-009507513-2001USA003458

PATIENT
  Sex: Female

DRUGS (1)
  1. BRIDION [Suspect]
     Active Substance: SUGAMMADEX
     Indication: NEUROMUSCULAR BLOCKADE REVERSAL
     Dosage: 2 MILLIGRAM, PER KG, ONCE
     Route: 042
     Dates: start: 20200108, end: 20200108

REACTIONS (1)
  - Anaesthetic complication pulmonary [Recovering/Resolving]

NARRATIVE: CASE EVENT DATE: 20200108
